FAERS Safety Report 7591787-8 (Version None)
Quarter: 2011Q3

REPORT INFORMATION
  Report Type: 
  Country: None (occurrence: None)
  Receive Date: 20110701
  Receipt Date: 20110701
  Transmission Date: 20111222
  Serious: No
  Sender: FDA-Public Use
  Company Number: None

PATIENT

DRUGS (1)
  1. PROCRIT [Suspect]
     Indication: ANAEMIA
     Dates: start: 20100501

REACTIONS (4)
  - ACNE [None]
  - BURNING SENSATION [None]
  - PRODUCT CONTAMINATION PHYSICAL [None]
  - PRURITUS [None]
